FAERS Safety Report 9955649 (Version 3)
Quarter: 2014Q2

REPORT INFORMATION
  Report Type: Spontaneous
  Country: US (occurrence: US)
  Receive Date: 20140304
  Receipt Date: 20140415
  Transmission Date: 20141212
  Serious: Yes (Hospitalization)
  Sender: FDA-Public Use
  Company Number: US-B.I. PHARMACEUTICALS,INC./RIDGEFIELD-2014-BI-09000BP

PATIENT
  Age: 79 Year
  Sex: Female
  Weight: 80 kg

DRUGS (8)
  1. PRADAXA [Suspect]
     Indication: CEREBROVASCULAR ACCIDENT PROPHYLAXIS
     Dosage: 300 MG
     Route: 048
     Dates: start: 20130613, end: 20140206
  2. PRADAXA [Suspect]
     Indication: ATRIAL FIBRILLATION
  3. FLECANIDE [Concomitant]
     Route: 065
  4. ARIMIDEX [Concomitant]
     Dosage: 1 MG
     Route: 065
  5. GLYMEPIRIDE [Concomitant]
     Route: 065
  6. CARDIZEM [Concomitant]
     Dosage: 180 MG
     Route: 065
  7. TAMBOCOR [Concomitant]
     Dosage: 100 MG
     Route: 065
  8. ASPIRIN [Concomitant]
     Dosage: 325 MG
     Route: 065

REACTIONS (1)
  - Gastrointestinal haemorrhage [Recovered/Resolved]
